FAERS Safety Report 9736697 (Version 2)
Quarter: 2015Q3

REPORT INFORMATION
  Report Type: Spontaneous
  Country: US (occurrence: US)
  Receive Date: 20131206
  Receipt Date: 20150804
  Transmission Date: 20151125
  Serious: No
  Sender: FDA-Public Use
  Company Number: US-GILEAD-2009-0023452

PATIENT
  Age: 66 Year
  Sex: Female
  Weight: 96.61 kg

DRUGS (33)
  1. REVATIO [Concomitant]
     Active Substance: SILDENAFIL CITRATE
  2. COUMADIN [Concomitant]
     Active Substance: WARFARIN SODIUM
  3. VITAMIN D3 [Concomitant]
     Active Substance: CHOLECALCIFEROL
  4. GLUCOPHAGE [Concomitant]
     Active Substance: METFORMIN HYDROCHLORIDE
  5. DIGOXIN. [Concomitant]
     Active Substance: DIGOXIN
  6. PREVACID [Concomitant]
     Active Substance: LANSOPRAZOLE
  7. TRAMADOL. [Concomitant]
     Active Substance: TRAMADOL
  8. CENTRUM SILVER [Concomitant]
     Active Substance: VITAMINS
  9. ACULAR [Concomitant]
     Active Substance: KETOROLAC TROMETHAMINE
  10. WELLBUTRIN [Concomitant]
     Active Substance: BUPROPION HYDROCHLORIDE
  11. CARDIZEM [Concomitant]
     Active Substance: DILTIAZEM HYDROCHLORIDE
  12. CLARITIN-D 12 HOUR [Concomitant]
     Active Substance: LORATADINE\PSEUDOEPHEDRINE SULFATE
  13. MAGNESIUM [Concomitant]
     Active Substance: MAGNESIUM
  14. ZYMAR [Concomitant]
     Active Substance: GATIFLOXACIN
  15. CARDIZEM [Concomitant]
     Active Substance: DILTIAZEM HYDROCHLORIDE
  16. SPIRONOLACTONE. [Concomitant]
     Active Substance: SPIRONOLACTONE
  17. VITAMIN B12 [Concomitant]
     Active Substance: CYANOCOBALAMIN
  18. ACTOS [Concomitant]
     Active Substance: PIOGLITAZONE HYDROCHLORIDE
  19. MIRAPEX [Concomitant]
     Active Substance: PRAMIPEXOLE DIHYDROCHLORIDE
  20. LETAIRIS [Suspect]
     Active Substance: AMBRISENTAN
     Indication: PULMONARY ARTERIAL HYPERTENSION
     Route: 048
     Dates: start: 20070915
  21. OMEGA 3 [Concomitant]
     Active Substance: OMEGA-3 FATTY ACIDS
  22. ALBUTEROL. [Concomitant]
     Active Substance: ALBUTEROL
  23. CLONAZEPAM. [Concomitant]
     Active Substance: CLONAZEPAM
  24. ADVAIR HFA [Concomitant]
     Active Substance: FLUTICASONE PROPIONATE\SALMETEROL XINAFOATE
  25. SINGULAIR [Concomitant]
     Active Substance: MONTELUKAST SODIUM
  26. TORSEMIDE. [Concomitant]
     Active Substance: TORSEMIDE
  27. CALCIUM CITRATE [Concomitant]
     Active Substance: CALCIUM CITRATE
  28. OXYGEN. [Concomitant]
     Active Substance: OXYGEN
  29. PRED FORTE [Concomitant]
     Active Substance: PREDNISOLONE ACETATE
  30. ALENDRONATE SODIUM. [Concomitant]
     Active Substance: ALENDRONATE SODIUM
  31. GLYBURIDE. [Concomitant]
     Active Substance: GLYBURIDE
  32. FLONASE [Concomitant]
     Active Substance: FLUTICASONE PROPIONATE
  33. LIPITOR [Concomitant]
     Active Substance: ATORVASTATIN CALCIUM

REACTIONS (1)
  - Blood count abnormal [Unknown]
